FAERS Safety Report 6470016-2 (Version None)
Quarter: 2009Q4

REPORT INFORMATION
  Report Type: 
  Country: None (occurrence: None)
  Receive Date: 20091203
  Receipt Date: 20071105
  Transmission Date: 20100525
  Serious: Yes (Hospitalization)
  Sender: FDA-Public Use
  Company Number: TR-ELI_LILLY_AND_COMPANY-TR200711002157

PATIENT
  Sex: Male
  Weight: 43 kg

DRUGS (4)
  1. HUMULIN N [Suspect]
     Indication: TYPE 1 DIABETES MELLITUS
     Dosage: 6 U, OTHER, AT NIGHT
     Route: 058
  2. HUMULIN R [Suspect]
     Indication: TYPE 1 DIABETES MELLITUS
     Dosage: 10 U, EACH MORNING
     Route: 058
  3. HUMULIN R [Suspect]
     Dosage: 6 U, OTHER, AT NOON
     Route: 058
  4. HUMULIN R [Suspect]
     Dosage: 10 U, EACH EVENING
     Route: 058

REACTIONS (1)
  - TOE AMPUTATION [None]
